FAERS Safety Report 8554234-5 (Version None)
Quarter: 2012Q3

REPORT INFORMATION
  Report Type: 
  Country: None (occurrence: None)
  Receive Date: 20120731
  Receipt Date: 20120723
  Transmission Date: 20120928
  Serious: Yes (Hospitalization)
  Sender: FDA-Public Use
  Company Number: FR-MSD-1207FRA012448

PATIENT

DRUGS (4)
  1. VANCOMYCIN [Suspect]
     Dosage: UNK
     Route: 042
     Dates: start: 20120621
  2. CLAFORAN [Suspect]
     Dosage: UNK
     Route: 042
     Dates: start: 20120621, end: 20120626
  3. GENTAMICIN [Suspect]
     Dosage: 1 DF, TID
     Route: 042
     Dates: start: 20120621
  4. TIENAM 500MG/500MG, POUDRE POUR PERFUSION [Suspect]
     Indication: STAPHYLOCOCCAL INFECTION
     Dosage: UNK
     Route: 042
     Dates: start: 20120626

REACTIONS (1)
  - LIVER INJURY [None]
